FAERS Safety Report 9842962 (Version 1)
Quarter: 2014Q1

REPORT INFORMATION
  Report Type: Spontaneous
  Country: US (occurrence: US)
  Receive Date: 20140124
  Receipt Date: 20140124
  Transmission Date: 20141002
  Serious: No
  Sender: FDA-Public Use
  Company Number: US-PFIZER INC-2014018636

PATIENT
  Age: 44 Year
  Sex: Male
  Weight: 105.67 kg

DRUGS (5)
  1. CELEBREX [Suspect]
     Indication: PAIN
     Dosage: 100 MG, UNK
     Route: 048
     Dates: start: 2013, end: 2013
  2. LYRICA [Concomitant]
     Dosage: UNK
  3. TOPROL XL [Concomitant]
     Indication: HYPERTENSION
     Dosage: 50 MG, UNK
  4. NORVASC [Concomitant]
     Indication: HYPERTENSION
     Dosage: 15 MG, UNK
  5. OXYCONTIN [Concomitant]
     Dosage: UNK, 3X/DAY

REACTIONS (2)
  - Off label use [Recovered/Resolved]
  - Abdominal discomfort [Not Recovered/Not Resolved]
